FAERS Safety Report 16789366 (Version 2)
Quarter: 2019Q3

REPORT INFORMATION
  Report Type: Spontaneous
  Country: BR (occurrence: BR)
  Receive Date: 20190910
  Receipt Date: 20190920
  Transmission Date: 20191005
  Serious: Yes (Death)
  Sender: FDA-Public Use
  Company Number: BR-ROCHE-2395180

PATIENT
  Sex: Male
  Weight: 85.1 kg

DRUGS (1)
  1. ESBRIET [Suspect]
     Active Substance: PIRFENIDONE
     Indication: IDIOPATHIC PULMONARY FIBROSIS
     Route: 065

REACTIONS (4)
  - Respiratory disorder [Fatal]
  - Sensory disturbance [Fatal]
  - Infection [Fatal]
  - Cardio-respiratory arrest [Fatal]
